FAERS Safety Report 4681476-1 (Version None)
Quarter: 2005Q2

REPORT INFORMATION
  Report Type: 
  Country: None (occurrence: None)
  Receive Date: 20050601
  Receipt Date: 20050512
  Transmission Date: 20051028
  Serious: No
  Sender: FDA-Public Use
  Company Number: USA050597943

PATIENT
  Age: 10 Year
  Sex: Female

DRUGS (3)
  1. STRATTERA [Suspect]
     Indication: ATTENTION DEFICIT/HYPERACTIVITY DISORDER
     Dosage: 50 MG
     Dates: start: 20040801, end: 20050501
  2. CONCERTA [Concomitant]
  3. ZOLOFT [Concomitant]

REACTIONS (2)
  - ASPARTATE AMINOTRANSFERASE INCREASED [None]
  - HEPATOMEGALY [None]
